FAERS Safety Report 5821478-2 (Version None)
Quarter: 2008Q3

REPORT INFORMATION
  Report Type: 
  Country: None (occurrence: None)
  Receive Date: 20080724
  Receipt Date: 20080722
  Transmission Date: 20090109
  Serious: Yes (Other)
  Sender: FDA-Public Use
  Company Number: B0529789A

PATIENT

DRUGS (1)
  1. ACYCLOVIR [Suspect]
     Indication: HERPES ZOSTER
     Dosage: 250MG PER DAY
     Route: 042

REACTIONS (3)
  - ALTERED STATE OF CONSCIOUSNESS [None]
  - DYSLALIA [None]
  - ENCEPHALOPATHY [None]
